FAERS Safety Report 21509325 (Version 1)
Quarter: 2022Q4

REPORT INFORMATION
  Report Type: Spontaneous
  Country: DE (occurrence: DE)
  Receive Date: 20221026
  Receipt Date: 20221026
  Transmission Date: 20230112
  Serious: Yes (Other)
  Sender: FDA-Public Use
  Company Number: None

PATIENT
  Sex: Male

DRUGS (6)
  1. MESALAMINE [Suspect]
     Active Substance: MESALAMINE
     Indication: Colitis ulcerative
     Dosage: APPLICATION IN THE EVENING
     Dates: start: 20220921, end: 20221012
  2. MESALAMINE [Suspect]
     Active Substance: MESALAMINE
     Indication: Helicobacter test positive
  3. MESALAMINE [Suspect]
     Active Substance: MESALAMINE
     Indication: Gastritis
  4. MESALAMINE [Suspect]
     Active Substance: MESALAMINE
     Indication: Colitis ulcerative
     Dosage: UNK
     Dates: start: 20220921, end: 20221012
  5. MESALAMINE [Suspect]
     Active Substance: MESALAMINE
     Indication: Helicobacter test positive
  6. MESALAMINE [Suspect]
     Active Substance: MESALAMINE
     Indication: Gastritis

REACTIONS (5)
  - Diarrhoea haemorrhagic [Not Recovered/Not Resolved]
  - Nasal congestion [Not Recovered/Not Resolved]
  - Feeling abnormal [Not Recovered/Not Resolved]
  - Diarrhoea [Not Recovered/Not Resolved]
  - Headache [Not Recovered/Not Resolved]

NARRATIVE: CASE EVENT DATE: 20220101
